FAERS Safety Report 4814996-7 (Version None)
Quarter: 2005Q4

REPORT INFORMATION
  Report Type: 
  Country: None (occurrence: None)
  Receive Date: 20051026
  Receipt Date: 20051011
  Transmission Date: 20060501
  Serious: Yes (Hospitalization)
  Sender: FDA-Public Use
  Company Number: 2005EU002136

PATIENT
  Age: 29 Year
  Sex: Male

DRUGS (4)
  1. FK506 (TACROLIMUS) CAPSULE [Suspect]
     Indication: RENAL TRANSPLANT
     Dosage: 2.00 MG, BID, ORAL
     Route: 048
     Dates: start: 20040428
  2. MYCOPHENOLATE MOFETIL (MYCOPHENOLATE MOFETIL) [Suspect]
     Indication: RENAL TRANSPLANT
     Dosage: SEE IMAGE
     Route: 048
     Dates: start: 20040428
  3. DACLIZUMAB (DACLIZUMAB) [Suspect]
     Indication: RENAL TRANSPLANT
     Dosage: 2.00 MG/KG, /D, IV NOS
     Route: 042
     Dates: start: 20040428, end: 20040622
  4. PREDNISONE [Suspect]
     Indication: RENAL TRANSPLANT
     Dosage: 5.00 MG, /D,
     Dates: start: 20040502

REACTIONS (1)
  - URETERIC STENOSIS [None]
